FAERS Safety Report 9523994 (Version 1)
Quarter: 2013Q3

REPORT INFORMATION
  Report Type: Spontaneous
  Country: US (occurrence: None)
  Receive Date: 20130912
  Receipt Date: 20130912
  Transmission Date: 20140515
  Serious: Yes (Hospitalization)
  Sender: FDA-Public Use
  Company Number: None

PATIENT
  Age: 23 Year
  Sex: Male
  Weight: 130 kg

DRUGS (8)
  1. ABILIFY [Suspect]
     Indication: BIPOLAR DISORDER
     Dosage: AT LEAST 5 MONTHS
  2. LITHIUM [Concomitant]
  3. PROTONIX [Concomitant]
  4. VANCOMYCIN [Concomitant]
  5. METHYLPREDNISOLONE [Concomitant]
  6. OSELTAMIVIR [Concomitant]
  7. INSULIN [Concomitant]
  8. CALCIUM GLUCONATE [Concomitant]

REACTIONS (8)
  - Acute respiratory distress syndrome [None]
  - Weight increased [None]
  - Dyspnoea exertional [None]
  - Snoring [None]
  - Somnolence [None]
  - Pyrexia [None]
  - Pain [None]
  - Malaise [None]
